FAERS Safety Report 10259616 (Version 1)
Quarter: 2014Q2

REPORT INFORMATION
  Report Type: Report from Study
  Country: US (occurrence: US)
  Receive Date: 20140625
  Receipt Date: 20140625
  Transmission Date: 20141212
  Serious: Yes (Hospitalization, Other)
  Sender: FDA-Public Use
  Company Number: PHEH2014US012517

PATIENT
  Sex: Male

DRUGS (3)
  1. CLOZARIL [Suspect]
     Dosage: 100 MG, UNK
  2. CLOZARIL [Suspect]
     Dosage: 125 MG, UNK
  3. CLOZARIL [Suspect]
     Dosage: UNK

REACTIONS (5)
  - Toxicity to various agents [Unknown]
  - Parkinson^s disease [Unknown]
  - Somnolence [Unknown]
  - Dementia [Unknown]
  - Failure to thrive [Unknown]
